FAERS Safety Report 14838084 (Version 5)
Quarter: 2018Q2

REPORT INFORMATION
  Report Type: Spontaneous
  Country: JP (occurrence: JP)
  Receive Date: 20180502
  Receipt Date: 20180614
  Transmission Date: 20180711
  Serious: Yes (Death, Hospitalization, Other)
  Sender: FDA-Public Use
  Company Number: JP-PFIZER INC-2018177247

PATIENT
  Age: 62 Year
  Sex: Male

DRUGS (6)
  1. AMIODARONE HCL [Suspect]
     Active Substance: AMIODARONE HYDROCHLORIDE
     Indication: VENTRICULAR TACHYCARDIA
  2. ENALAPRIL [Concomitant]
     Active Substance: ENALAPRIL
     Dosage: 5 MG, 1X/DAY
  3. PREDNISOLONE. [Suspect]
     Active Substance: PREDNISOLONE
     Indication: CARDIAC SARCOIDOSIS
     Dosage: 10 MG, 1X/DAY
     Route: 065
  4. LANSOPRAZOLE. [Concomitant]
     Active Substance: LANSOPRAZOLE
     Dosage: 15 MG, 1X/DAY
  5. AMIODARONE HCL [Suspect]
     Active Substance: AMIODARONE HYDROCHLORIDE
     Indication: CARDIAC SARCOIDOSIS
     Dosage: 150 MG, 1X/DAY
  6. METOPROLOL. [Concomitant]
     Active Substance: METOPROLOL
     Dosage: 20 MG, 1X/DAY

REACTIONS (2)
  - Hepatotoxicity [Unknown]
  - Hepatic failure [Fatal]
